FAERS Safety Report 18425704 (Version 1)
Quarter: 2020Q4

REPORT INFORMATION
  Report Type: Spontaneous
  Country: US (occurrence: US)
  Receive Date: 20201026
  Receipt Date: 20201026
  Transmission Date: 20210114
  Serious: Yes (Death)
  Sender: FDA-Public Use
  Company Number: None

PATIENT
  Sex: Male

DRUGS (19)
  1. ALPRAZOLAM. [Concomitant]
     Active Substance: ALPRAZOLAM
  2. HYCAMTIN [Suspect]
     Active Substance: TOPOTECAN HYDROCHLORIDE
     Dosage: ?          OTHER FREQUENCY:DAYS1-5/21DAY;?
     Route: 048
     Dates: start: 20200715
  3. DEXAMETHASON [Concomitant]
     Active Substance: DEXAMETHASONE
  4. DEXAMETHASON [Concomitant]
     Active Substance: DEXAMETHASONE
  5. DICLOFENAC [Concomitant]
     Active Substance: DICLOFENAC
  6. FENTANYL. [Concomitant]
     Active Substance: FENTANYL
  7. IBUPROFEN. [Concomitant]
     Active Substance: IBUPROFEN
  8. AMOX/K CLAV [Concomitant]
     Active Substance: AMOXICILLIN\CLAVULANATE POTASSIUM
  9. CYCLOBENZAPR [Concomitant]
     Active Substance: CYCLOBENZAPRINE
  10. IPRATROPLUM/SOL ALBUTER [Concomitant]
  11. ALBUTEROL. [Concomitant]
     Active Substance: ALBUTEROL
  12. DOXYCYCL HYC [Concomitant]
  13. HYDROCO/APAP [Concomitant]
     Active Substance: ACETAMINOPHEN\HYDROCODONE
  14. ACETYLCYST SOL [Concomitant]
  15. CYPROFLOXACIN [Concomitant]
     Active Substance: CIPROFLOXACIN
  16. APAP/CODEINE [Concomitant]
     Active Substance: ACETAMINOPHEN\CODEINE PHOSPHATE
  17. AZITHROMYCIN ANHYDROUS. [Concomitant]
     Active Substance: AZITHROMYCIN ANHYDROUS
  18. CIPRODEX [Concomitant]
     Active Substance: CIPROFLOXACIN HYDROCHLORIDE\DEXAMETHASONE
  19. HYDROCO/APAP [Concomitant]
     Active Substance: ACETAMINOPHEN\HYDROCODONE

REACTIONS (1)
  - Death [None]
